FAERS Safety Report 5791331-1 (Version None)
Quarter: 2008Q2

REPORT INFORMATION
  Report Type: 
  Country: None (occurrence: None)
  Receive Date: 20080626
  Receipt Date: 20080616
  Transmission Date: 20081010
  Serious: Yes (Other)
  Sender: FDA-Public Use
  Company Number: DE-PURDUE-DEU_2008_0004424

PATIENT
  Age: 66 Year
  Sex: Female

DRUGS (1)
  1. PALLADONE [Suspect]
     Indication: PAIN
     Dates: start: 20020601, end: 20080301

REACTIONS (2)
  - PERIODONTITIS [None]
  - TOOTH DISORDER [None]
